FAERS Safety Report 9236549 (Version 1)
Quarter: 2013Q1

REPORT INFORMATION
  Report Type: Spontaneous
  Country: US (occurrence: None)
  Receive Date: 20130327
  Receipt Date: 20130327
  Transmission Date: 20140127
  Serious: Yes (Death)
  Sender: FDA-Public Use
  Company Number: 2013PROUSA02652

PATIENT
  Age: 76 Year
  Sex: Male
  Weight: 111.1 kg

DRUGS (1)
  1. PROVENGE (SIPULEUCEL-T) SUSPENSION [Suspect]
     Indication: PROSTATE CANCER METASTATIC
     Route: 042
     Dates: start: 20121109, end: 20121109

REACTIONS (1)
  - Prostate cancer [None]
